FAERS Safety Report 9470877 (Version 2)
Quarter: 2014Q1

REPORT INFORMATION
  Report Type: Spontaneous
  Country: US (occurrence: US)
  Receive Date: 20130822
  Receipt Date: 20140304
  Transmission Date: 20141002
  Serious: No
  Sender: FDA-Public Use
  Company Number: US-PFIZER INC-2013240185

PATIENT
  Age: 78 Year
  Sex: Female

DRUGS (1)
  1. INLYTA [Suspect]
     Indication: RENAL CANCER
     Dosage: 5 MG, 2X/DAY
     Dates: start: 20130713, end: 20131219

REACTIONS (5)
  - Fatigue [Unknown]
  - Dysphonia [Unknown]
  - Disease progression [Unknown]
  - Renal cancer [Unknown]
  - Pain [Unknown]
